FAERS Safety Report 21714780 (Version 1)
Quarter: 2022Q4

REPORT INFORMATION
  Report Type: Spontaneous
  Country: US (occurrence: None)
  Receive Date: 20221209
  Receipt Date: 20221209
  Transmission Date: 20230112
  Serious: Yes (Disabling, Other)
  Sender: FDA-Public Use
  Company Number: None

PATIENT
  Age: 25 Year
  Sex: Male
  Weight: 85.5 kg

DRUGS (3)
  1. FINASTERIDE [Suspect]
     Active Substance: FINASTERIDE
     Indication: Androgenetic alopecia
     Dates: start: 20211115, end: 20220514
  2. FINASTERIDE [Concomitant]
     Active Substance: FINASTERIDE
  3. VITAMINS [Concomitant]
     Active Substance: VITAMINS

REACTIONS (14)
  - Feeling abnormal [None]
  - Headache [None]
  - Depression [None]
  - Fatigue [None]
  - Abdominal pain [None]
  - Insomnia [None]
  - Suicidal ideation [None]
  - Myalgia [None]
  - Tremor [None]
  - Neuralgia [None]
  - Muscle contractions involuntary [None]
  - Tinnitus [None]
  - Loss of personal independence in daily activities [None]
  - Educational problem [None]

NARRATIVE: CASE EVENT DATE: 20220514
